FAERS Safety Report 20094263 (Version 1)
Quarter: 2021Q4

REPORT INFORMATION
  Report Type: Spontaneous
  Country: US (occurrence: US)
  Receive Date: 20211122
  Receipt Date: 20211122
  Transmission Date: 20220303
  Serious: No
  Sender: FDA-Public Use
  Company Number: US-JNJFOC-20211059481

PATIENT
  Sex: Male

DRUGS (2)
  1. TYLENOL 8HR [Suspect]
     Active Substance: ACETAMINOPHEN
     Indication: Arthritis
     Dosage: 2 CAPLETS FOR THE LAST THREE DAYS, I TAKE EVERY 8 HOURS, SOMETIMES EVERY 9 HOURS. TODAY I TOOK AGAIN
     Route: 065
  2. TYLENOL 8HR [Suspect]
     Active Substance: ACETAMINOPHEN
     Indication: Myalgia

REACTIONS (2)
  - Inappropriate schedule of product administration [Unknown]
  - Pain [Unknown]
